FAERS Safety Report 25356175 (Version 2)
Quarter: 2025Q3

REPORT INFORMATION
  Report Type: Report from Study
  Country: US (occurrence: US)
  Receive Date: 20250526
  Receipt Date: 20250722
  Transmission Date: 20251020
  Serious: Yes (Hospitalization)
  Sender: ABBVIE
  Company Number: US-ABBVIE-6294055

PATIENT
  Age: 69 Year
  Sex: Female

DRUGS (1)
  1. SKYRIZI [Suspect]
     Active Substance: RISANKIZUMAB-RZAA
     Indication: Crohn^s disease
     Route: 042
     Dates: start: 20250501, end: 20250501

REACTIONS (3)
  - Fall [Recovered/Resolved]
  - Skin laceration [Recovered/Resolved]
  - Pneumonia viral [Not Recovered/Not Resolved]

NARRATIVE: CASE EVENT DATE: 20250501
